FAERS Safety Report 8401545-X (Version None)
Quarter: 2012Q2

REPORT INFORMATION
  Report Type: 
  Country: None (occurrence: None)
  Receive Date: 20120601
  Receipt Date: 20120522
  Transmission Date: 20120825
  Serious: Yes (Other)
  Sender: FDA-Public Use
  Company Number: GXKR2006ES03783

PATIENT
  Age: 32 Year
  Sex: Female
  Weight: 2.12 kg

DRUGS (4)
  1. PERPHENAZINE [Concomitant]
  2. VALPROIC ACID [Suspect]
     Indication: EPILEPSY
  3. INSULIN [Concomitant]
     Indication: DIABETES MELLITUS
  4. GAMMAGLOBULIN ANTI-D [Concomitant]

REACTIONS (2)
  - PREMATURE LABOUR [None]
  - MATERNAL EXPOSURE DURING PREGNANCY [None]
